FAERS Safety Report 7568876-7 (Version None)
Quarter: 2011Q2

REPORT INFORMATION
  Report Type: 
  Country: None (occurrence: None)
  Receive Date: 20110623
  Receipt Date: 20110621
  Transmission Date: 20111010
  Serious: No
  Sender: FDA-Public Use
  Company Number: US-PFIZER INC-2011137457

PATIENT
  Sex: Female

DRUGS (1)
  1. NEURONTIN [Suspect]
     Indication: LIMB DISCOMFORT
     Dosage: UNK

REACTIONS (6)
  - NAUSEA [None]
  - ANXIETY [None]
  - TENSION [None]
  - INSOMNIA [None]
  - DRUG DOSE OMISSION [None]
  - NIGHT SWEATS [None]
